FAERS Safety Report 22806756 (Version 3)
Quarter: 2023Q4

REPORT INFORMATION
  Report Type: Report from Study
  Country: US (occurrence: US)
  Receive Date: 20230810
  Receipt Date: 20231031
  Transmission Date: 20240110
  Serious: Yes (Other)
  Sender: FDA-Public Use
  Company Number: US-ABBVIE-5360526

PATIENT
  Age: 7 Year
  Sex: Female

DRUGS (1)
  1. HUMIRA [Suspect]
     Active Substance: ADALIMUMAB
     Indication: Juvenile idiopathic arthritis
     Dosage: CITRATE FREE
     Route: 058
     Dates: start: 20221117

REACTIONS (8)
  - Deafness bilateral [Not Recovered/Not Resolved]
  - Influenza [Recovered/Resolved]
  - Rash [Not Recovered/Not Resolved]
  - Ear infection [Unknown]
  - Hypersensitivity [Not Recovered/Not Resolved]
  - Gait disturbance [Unknown]
  - Laboratory test abnormal [Unknown]
  - Seasonal allergy [Unknown]

NARRATIVE: CASE EVENT DATE: 20230713
